FAERS Safety Report 23952968 (Version 1)
Quarter: 2024Q2

REPORT INFORMATION
  Report Type: Spontaneous
  Country: US (occurrence: US)
  Receive Date: 20240608
  Receipt Date: 20240608
  Transmission Date: 20240716
  Serious: Yes (Other)
  Sender: FDA-Public Use
  Company Number: US-ABBVIE-5790837

PATIENT
  Sex: Female

DRUGS (1)
  1. REFRESH RELIEVA [Suspect]
     Active Substance: CARBOXYMETHYLCELLULOSE SODIUM\GLYCERIN
     Indication: Dry eye
     Dosage: FORM STRENGTH CMC 5MG/ML; GLYCERIN 9MG/ML SOL MD
     Route: 047

REACTIONS (2)
  - Cataract [Unknown]
  - Product container issue [Unknown]
